FAERS Safety Report 5318766-5 (Version None)
Quarter: 2007Q2

REPORT INFORMATION
  Report Type: 
  Country: None (occurrence: None)
  Receive Date: 20070501
  Receipt Date: 20061016
  Transmission Date: 20071010
  Serious: Yes (Other)
  Sender: FDA-Public Use
  Company Number: 6031451

PATIENT
  Age: 61 Year
  Sex: Male

DRUGS (1)
  1. AMIODARONE (INTRAVENOUS INFUSION) (AMIODARONE HYDROCHLORIDE) [Suspect]
     Indication: VENTRICULAR FIBRILLATION
     Dosage: (300 MG)
     Route: 040

REACTIONS (7)
  - BLISTER [None]
  - DRUG TOXICITY [None]
  - EXTRAVASATION [None]
  - INJECTION SITE REACTION [None]
  - OEDEMA PERIPHERAL [None]
  - SKIN DISCOLOURATION [None]
  - SKIN NECROSIS [None]
